FAERS Safety Report 7289260-X (Version None)
Quarter: 2011Q1

REPORT INFORMATION
  Report Type: 
  Country: None (occurrence: None)
  Receive Date: 20110201
  Receipt Date: 20110115
  Transmission Date: 20110831
  Serious: Yes (Other)
  Sender: FDA-Public Use
  Company Number: 2011AP000056

PATIENT
  Age: 55 Year
  Sex: Male

DRUGS (3)
  1. PROPOFOL [Suspect]
     Indication: PRODUCT USED FOR UNKNOWN INDICATION
     Dosage: 20 MG;QH
  2. FENTANYL [Suspect]
     Indication: POSTOPERATIVE ANALGESIA
     Dosage: 25 UG;QH;IV ; 350 UG;QH;IV
     Route: 042
  3. DILTIAZEM [Suspect]
     Indication: PRODUCT USED FOR UNKNOWN INDICATION
     Dosage: 15 MG;QH

REACTIONS (7)
  - NEUROTOXICITY [None]
  - MYOCLONUS [None]
  - CONFUSIONAL STATE [None]
  - TACHYPNOEA [None]
  - DELIRIUM [None]
  - TOXICITY TO VARIOUS AGENTS [None]
  - DRUG INTERACTION [None]
